FAERS Safety Report 8664829 (Version 4)
Quarter: 2012Q4

REPORT INFORMATION
  Report Type: 
  Country: US (occurrence: US)
  Receive Date: 20120713
  Receipt Date: 20121128
  Transmission Date: 20130627
  Serious: Yes (Other)
  Sender: FDA-Public Use
  Company Number: US-BAXTER-2012BAX010526

PATIENT
  Age: 3 Year
  Sex: Female
  Weight: 13 kg

DRUGS (5)
  1. GAMMAGARD LIQUID [Suspect]
     Indication: KAWASAKI^S DISEASE
     Route: 042
     Dates: start: 20120620, end: 20120621
  2. GAMMAGARD LIQUID [Suspect]
     Indication: CORONARY ARTERY DILATATION
  3. IBUPROFEN [Concomitant]
     Indication: PAIN
     Route: 065
  4. ASPIRIN [Concomitant]
     Indication: KAWASAKI^S DISEASE
     Route: 048
     Dates: start: 20120620
  5. ZANTAC [Concomitant]
     Indication: STRESS ULCER
     Route: 048
     Dates: start: 20120620

REACTIONS (6)
  - Haemoglobin decreased [Unknown]
  - Antibody test abnormal [Unknown]
  - Antibody test abnormal [Unknown]
  - Coronary artery aneurysm [Unknown]
  - Red blood cell sedimentation rate increased [Unknown]
  - Coombs direct test positive [Unknown]
